FAERS Safety Report 11652750 (Version 1)
Quarter: 2015Q4

REPORT INFORMATION
  Report Type: Spontaneous
  Country: JP (occurrence: JP)
  Receive Date: 20151022
  Receipt Date: 20151022
  Transmission Date: 20160304
  Serious: Yes (Other)
  Sender: FDA-Public Use
  Company Number: JP-PFIZER INC-2015346813

PATIENT

DRUGS (1)
  1. JZOLOFT [Suspect]
     Active Substance: SERTRALINE HYDROCHLORIDE
     Indication: PANIC DISORDER
     Dosage: UP TO 100 MG, UNK
     Route: 064
     Dates: start: 2013

REACTIONS (2)
  - Developmental delay [Not Recovered/Not Resolved]
  - Maternal exposure during pregnancy [Unknown]
